FAERS Safety Report 18118992 (Version 2)
Quarter: 2020Q3

REPORT INFORMATION
  Report Type: Report from Study
  Country: US (occurrence: US)
  Receive Date: 20200806
  Receipt Date: 20200916
  Transmission Date: 20201103
  Serious: Yes (Hospitalization)
  Sender: FDA-Public Use
  Company Number: US-ROCHE-2650931

PATIENT
  Age: 72 Year
  Sex: Female
  Weight: 102 kg

DRUGS (19)
  1. KEFLEX [Concomitant]
     Active Substance: CEPHALEXIN
     Indication: URINARY TRACT INFECTION
     Route: 048
     Dates: start: 20200708, end: 20200717
  2. DEXTROSE. [Concomitant]
     Active Substance: DEXTROSE
     Indication: HYPOGLYCAEMIA
     Dosage: 12.5?25 G
     Route: 042
     Dates: start: 20200724
  3. CINNAMON BARK [Concomitant]
     Active Substance: CINNAMON\HERBALS
     Dosage: 1 UNIT
     Route: 048
  4. ACETAMINOPHEN. [Concomitant]
     Active Substance: ACETAMINOPHEN
     Indication: URINARY TRACT INFECTION
     Route: 048
     Dates: start: 20200725
  5. RIVAROXABAN [Concomitant]
     Active Substance: RIVAROXABAN
     Route: 048
     Dates: start: 20200727
  6. GLUCOSAMINE SULFATE [Concomitant]
     Active Substance: GLUCOSAMINE SULFATE
     Dosage: 1 UNIT
     Route: 048
  7. TRIAMCINOLONE [Concomitant]
     Active Substance: TRIAMCINOLONE
     Indication: RASH MACULO-PAPULAR
     Route: 061
     Dates: start: 20200123
  8. PREDNISONE. [Concomitant]
     Active Substance: PREDNISONE
     Indication: RASH MACULO-PAPULAR
     Route: 048
     Dates: start: 20200710, end: 20200717
  9. CEFAZOLIN [Concomitant]
     Active Substance: CEFAZOLIN
     Indication: URINARY TRACT INFECTION
     Dates: start: 20200724
  10. HUMALOG [Concomitant]
     Active Substance: INSULIN LISPRO
     Dosage: 0?5 UNITS
     Route: 058
     Dates: start: 20200725
  11. SERTRALINE [Concomitant]
     Active Substance: SERTRALINE HYDROCHLORIDE
     Indication: DEPRESSION
     Route: 048
     Dates: start: 20190831
  12. FISH OIL [Concomitant]
     Active Substance: FISH OIL
     Dosage: 1 UNIT
     Route: 048
  13. ATORVASTIN [Concomitant]
     Active Substance: ATORVASTATIN
     Indication: HYPERLIPIDAEMIA
     Dosage: H.S. (AT BEDTIME)
     Route: 048
     Dates: start: 20190819
  14. BENADRYL CREAM [Concomitant]
     Active Substance: DIPHENHYDRAMINE\ZINC ACETATE
     Indication: RASH MACULO-PAPULAR
     Dosage: 0.1?2 %
     Route: 061
     Dates: start: 20200123
  15. RIVAROXABAN [Concomitant]
     Active Substance: RIVAROXABAN
     Indication: THROMBOSIS PROPHYLAXIS
     Route: 048
     Dates: start: 20190607, end: 20200615
  16. RIVAROXABAN [Concomitant]
     Active Substance: RIVAROXABAN
     Route: 048
     Dates: start: 20200615, end: 20200726
  17. ENTRECTINIB [Suspect]
     Active Substance: ENTRECTINIB
     Indication: BREAST CANCER
     Route: 048
     Dates: start: 20200612
  18. IRBESARTAN HYDROCHLOROTHIAZIDE [Concomitant]
     Active Substance: HYDROCHLOROTHIAZIDE\IRBESARTAN
     Indication: HYPERTENSION
     Dosage: 300?12.5 MG
     Route: 048
     Dates: start: 20190505, end: 20200724
  19. FUROSEMIDE. [Concomitant]
     Active Substance: FUROSEMIDE
     Indication: OEDEMA PERIPHERAL
     Route: 048
     Dates: start: 20200710, end: 20200724

REACTIONS (1)
  - Atrial flutter [Recovered/Resolved]

NARRATIVE: CASE EVENT DATE: 20200721
